FAERS Safety Report 10237720 (Version 2)
Quarter: 2014Q2

REPORT INFORMATION
  Report Type: Spontaneous
  Country: JP (occurrence: JP)
  Receive Date: 20140616
  Receipt Date: 20140618
  Transmission Date: 20141212
  Serious: Yes (Hospitalization, Other)
  Sender: FDA-Public Use
  Company Number: JP-009507513-1406JPN007553

PATIENT
  Age: 4 Year
  Sex: Female

DRUGS (2)
  1. SINGULAIR FINE GRANULES 4MG [Suspect]
     Dosage: 4 MG, QD
     Route: 048
     Dates: start: 201310, end: 201310
  2. OZEX (TOSUFLOXACIN TOSYLATE) [Suspect]
     Indication: PNEUMONIA
     Dosage: DAILY DOSE UNKNOWN
     Route: 048

REACTIONS (3)
  - Oculomucocutaneous syndrome [Unknown]
  - Pneumonia [Unknown]
  - Stevens-Johnson syndrome [None]
